FAERS Safety Report 5374485-0 (Version None)
Quarter: 2007Q2

REPORT INFORMATION
  Report Type: 
  Country: None (occurrence: None)
  Receive Date: 20070629
  Receipt Date: 20070619
  Transmission Date: 20071010
  Serious: Yes (Other)
  Sender: FDA-Public Use
  Company Number: JP-JNJFOC-20070605309

PATIENT
  Age: 78 Year
  Sex: Male

DRUGS (1)
  1. ITRACONAZOLE [Suspect]
     Indication: CANDIDA PNEUMONIA
     Route: 042

REACTIONS (2)
  - BLOOD PRESSURE DECREASED [None]
  - LIVER FUNCTION TEST ABNORMAL [None]
